FAERS Safety Report 18935030 (Version 1)
Quarter: 2021Q1

REPORT INFORMATION
  Report Type: Spontaneous
  Country: ES (occurrence: ES)
  Receive Date: 20210224
  Receipt Date: 20210224
  Transmission Date: 20210420
  Serious: Yes (Hospitalization)
  Sender: FDA-Public Use
  Company Number: ES-PFIZER INC-2021157882

PATIENT
  Age: 76 Year
  Sex: Female

DRUGS (7)
  1. CALCIUM/COLECALCIFEROL [Concomitant]
     Active Substance: CALCIUM\CHOLECALCIFEROL
     Indication: OSTEOPOROSIS
     Route: 048
  2. PREGABALIN. [Suspect]
     Active Substance: PREGABALIN
     Route: 048
  3. DUROGESIC [Suspect]
     Active Substance: FENTANYL
     Dosage: 75 MG FREQ:72 H;
     Route: 062
  4. LEVOTHYROXINE. [Concomitant]
     Active Substance: LEVOTHYROXINE
     Indication: HYPOTHYROIDISM
  5. ESCITALOPRAM [Concomitant]
     Active Substance: ESCITALOPRAM OXALATE
     Indication: DEPRESSION
  6. METAMIZOLE [Suspect]
     Active Substance: METAMIZOLE
     Dosage: 575 MG, 3X/DAY
     Route: 048
  7. PARACETAMOL [Suspect]
     Active Substance: ACETAMINOPHEN
     Dosage: 1 G FREQ:8 H;

REACTIONS (2)
  - Withdrawal syndrome [Recovering/Resolving]
  - Coma [Recovering/Resolving]
